FAERS Safety Report 23264946 (Version 1)
Quarter: 2023Q4

REPORT INFORMATION
  Report Type: Spontaneous
  Country: US (occurrence: US)
  Receive Date: 20231206
  Receipt Date: 20231206
  Transmission Date: 20240110
  Serious: Yes (Hospitalization)
  Sender: FDA-Public Use
  Company Number: US-STERISCIENCE B.V.-2023-ST-001535

PATIENT
  Age: 28 Year
  Sex: Female

DRUGS (10)
  1. BUPIVACAINE [Suspect]
     Active Substance: BUPIVACAINE
     Indication: Analgesic therapy
     Dosage: 20 MILLILITER, INJECTION INCREMENTALLY
     Route: 065
  2. BUPIVACAINE [Suspect]
     Active Substance: BUPIVACAINE
     Dosage: 5 MILLILITER; INJECTION
     Route: 065
  3. BUPIVACAINE [Suspect]
     Active Substance: BUPIVACAINE
     Dosage: 20 MILLILITER, ONE BOLUS
     Route: 065
  4. BUPIVACAINE [Suspect]
     Active Substance: BUPIVACAINE
     Dosage: 10 MILLILITER, ONE BOLUS
     Route: 065
  5. MORPHINE [Suspect]
     Active Substance: MORPHINE
     Indication: Labour induction
     Dosage: 15 MILLIGRAM
     Route: 042
  6. MORPHINE [Suspect]
     Active Substance: MORPHINE
     Dosage: 15 MILLIGRAM
  7. OXYTOCIN [Suspect]
     Active Substance: OXYTOCIN
     Indication: Labour induction
     Dosage: INFUSION
     Route: 042
  8. BUTORPHANOL [Suspect]
     Active Substance: BUTORPHANOL
     Indication: Labour induction
     Dosage: 3 MILLIGRAM
     Route: 042
  9. ROPIVACAINE [Suspect]
     Active Substance: ROPIVACAINE
     Indication: Analgesic therapy
     Dosage: 30 MILLILITER, Q3H, INTERMITTENT BOLUS
     Route: 065
  10. FENTANYL [Suspect]
     Active Substance: FENTANYL\FENTANYL CITRATE
     Indication: Analgesic therapy
     Dosage: 100 MICROGRAM, TWO DOSES
     Route: 042

REACTIONS (2)
  - Maternal exposure during delivery [Unknown]
  - Off label use [Unknown]
